FAERS Safety Report 9779636 (Version 5)
Quarter: 2014Q1

REPORT INFORMATION
  Report Type: Spontaneous
  Country: JP (occurrence: JP)
  Receive Date: 20131223
  Receipt Date: 20140307
  Transmission Date: 20141002
  Serious: Yes (Hospitalization, Other)
  Sender: FDA-Public Use
  Company Number: JP-PFIZER INC-2013366655

PATIENT
  Age: 29 Year
  Sex: Female
  Weight: 47 kg

DRUGS (6)
  1. CELECOX [Suspect]
     Indication: JUVENILE IDIOPATHIC ARTHRITIS
     Dosage: 100 MG, 2X/DAY
     Route: 048
     Dates: end: 20130324
  2. TRIAZOLAM [Suspect]
     Indication: INSOMNIA
     Dosage: 0.25 MG, 1X/DAY
     Route: 048
     Dates: end: 20130321
  3. BUCILLAMINE [Suspect]
     Indication: JUVENILE IDIOPATHIC ARTHRITIS
     Dosage: 100 MG, DAILY
     Route: 048
     Dates: end: 20130324
  4. ACTEMRA [Suspect]
     Indication: JUVENILE IDIOPATHIC ARTHRITIS
     Dosage: 280 MG, 1X/DAY
     Route: 065
     Dates: start: 20130304, end: 20130304
  5. LANSOPRAZOLE [Suspect]
     Indication: PROPHYLAXIS
     Dosage: 15 MG, 1X/DAY
     Route: 048
     Dates: end: 20130324
  6. PREDONINE [Concomitant]
     Indication: JUVENILE IDIOPATHIC ARTHRITIS
     Dosage: 5 MG, DAILY

REACTIONS (3)
  - Hepatitis infectious mononucleosis [Recovered/Resolved]
  - Hepatic function abnormal [Recovered/Resolved]
  - Rash [Recovered/Resolved]
